FAERS Safety Report 9558374 (Version 1)
Quarter: 2013Q3

REPORT INFORMATION
  Report Type: Spontaneous
  Country: GB (occurrence: GB)
  Receive Date: 20130926
  Receipt Date: 20130926
  Transmission Date: 20140515
  Serious: Yes (Disabling)
  Sender: FDA-Public Use
  Company Number: GB-WATSON-2013-16894

PATIENT
  Age: 25 Year
  Sex: Female
  Weight: 169 kg

DRUGS (1)
  1. METRONIDAZOLE (UNKNOWN) [Suspect]
     Indication: TOOTH INFECTION
     Dosage: 1 DF, TID
     Route: 048
     Dates: start: 20130829

REACTIONS (1)
  - Candida infection [Not Recovered/Not Resolved]
